FAERS Safety Report 6122543-5 (Version None)
Quarter: 2009Q1

REPORT INFORMATION
  Report Type: 
  Country: None (occurrence: None)
  Receive Date: 20090318
  Receipt Date: 20090108
  Transmission Date: 20090719
  Serious: No
  Sender: FDA-Public Use
  Company Number: US-ASTRAZENECA-2009UW00698

PATIENT
  Age: 78 Year
  Sex: Female

DRUGS (6)
  1. SYMBICORT [Suspect]
     Indication: ASTHMA
     Dosage: 80/4.5 MCG, 2 PUFFS DAILY
     Route: 055
  2. SYMBICORT [Suspect]
     Dosage: 80/4.5 MCG, 1 PUFF TWICE DAILY
     Route: 055
  3. GLIMEPIRIDE [Concomitant]
  4. LIPITOR [Concomitant]
  5. LISINOPRIL [Concomitant]
     Route: 048
  6. PANTOPRAZOLE SODIUM [Concomitant]

REACTIONS (2)
  - BLOOD PRESSURE INCREASED [None]
  - NAUSEA [None]
